FAERS Safety Report 21389187 (Version 1)
Quarter: 2022Q3

REPORT INFORMATION
  Report Type: Spontaneous
  Country: DE (occurrence: DE)
  Receive Date: 20220929
  Receipt Date: 20220929
  Transmission Date: 20221026
  Serious: Yes (Hospitalization)
  Sender: FDA-Public Use
  Company Number: DE-ADRED-05326-01

PATIENT
  Age: 59 Year
  Sex: Male
  Weight: 75 kg

DRUGS (9)
  1. CANDESARTAN [Suspect]
     Active Substance: CANDESARTAN
     Indication: Product used for unknown indication
     Dosage: 32 MILLIGRAM DAILY; 1-0-1-0,
  2. TORSEMIDE [Suspect]
     Active Substance: TORSEMIDE
     Indication: Product used for unknown indication
     Dosage: 100 MILLIGRAM DAILY;  1-0-0-0
  3. BISOPROLOL [Suspect]
     Active Substance: BISOPROLOL
     Indication: Product used for unknown indication
     Dosage: 5 MILLIGRAM DAILY; 1-0-0-0
  4. MOXONIDINE [Suspect]
     Active Substance: MOXONIDINE
     Indication: Product used for unknown indication
     Dosage: .4 MILLIGRAM DAILY;  0-0-1-0
  5. MINOXIDIL [Suspect]
     Active Substance: MINOXIDIL
     Indication: Product used for unknown indication
     Dosage: 30 MILLIGRAM DAILY; 1-1-0-1
  6. LEVITRA [Concomitant]
     Active Substance: VARDENAFIL HYDROCHLORIDE
     Indication: Product used for unknown indication
     Dosage: 10 MG, IF NECESSARY
  7. Sevelamercarbonat [Concomitant]
     Indication: Product used for unknown indication
     Dosage: 800 MG
  8. CPS [Concomitant]
     Indication: Product used for unknown indication
     Dosage: SUNDAY
  9. METAMIZOL [Concomitant]
     Active Substance: METAMIZOLE SODIUM
     Indication: Product used for unknown indication
     Dosage: 20GTT, IF NEEDED

REACTIONS (11)
  - Headache [Recovering/Resolving]
  - Headache [Recovering/Resolving]
  - Hypertension [Recovering/Resolving]
  - Hypertensive crisis [Recovering/Resolving]
  - Headache [Recovering/Resolving]
  - Product monitoring error [Unknown]
  - Wrong technique in product usage process [Unknown]
  - Product dispensing error [Unknown]
  - Product prescribing error [Unknown]
  - Product administration error [Unknown]
  - Medication error [Unknown]
